FAERS Safety Report 10929872 (Version 1)
Quarter: 2015Q1

REPORT INFORMATION
  Report Type: Spontaneous
  Country: DE (occurrence: DE)
  Receive Date: 20150319
  Receipt Date: 20150319
  Transmission Date: 20150721
  Serious: Yes (Other)
  Sender: FDA-Public Use
  Company Number: DE-GE HEALTHCARE MEDICAL DIAGNOSTICS-OMPQ-PR-1503S-0221

PATIENT
  Age: 58 Year
  Sex: Female
  Weight: 97 kg

DRUGS (3)
  1. ACCUPAQUE [Suspect]
     Active Substance: IOHEXOL
     Indication: DIAGNOSTIC PROCEDURE
  2. ACCUPAQUE [Suspect]
     Active Substance: IOHEXOL
     Indication: MASS
     Route: 042
     Dates: start: 20150309, end: 20150309
  3. ACCUPAQUE [Suspect]
     Active Substance: IOHEXOL
     Indication: HAEMATURIA

REACTIONS (4)
  - Nasal congestion [Recovered/Resolved]
  - Flushing [Recovered/Resolved]
  - Cough [Recovered/Resolved]
  - Urticaria [Recovered/Resolved]

NARRATIVE: CASE EVENT DATE: 20150309
